FAERS Safety Report 6947556-2 (Version None)
Quarter: 2010Q3

REPORT INFORMATION
  Report Type: 
  Country: None (occurrence: None)
  Receive Date: 20100827
  Receipt Date: 20090917
  Transmission Date: 20110219
  Serious: No
  Sender: FDA-Public Use
  Company Number: US-ABBOTT-09P-163-0598527-00

PATIENT
  Sex: Female

DRUGS (6)
  1. NIASPAN [Suspect]
     Indication: BLOOD TRIGLYCERIDES INCREASED
     Dates: start: 20090828
  2. NIASPAN [Suspect]
     Indication: LOW DENSITY LIPOPROTEIN INCREASED
  3. PRAVACHOL [Suspect]
     Indication: BLOOD TRIGLYCERIDES INCREASED
     Dates: start: 20090828, end: 20090910
  4. PRAVACHOL [Suspect]
     Indication: LOW DENSITY LIPOPROTEIN INCREASED
  5. DOXYCYCLINE [Concomitant]
     Indication: ARTHROPOD BITE
     Dates: start: 20090909
  6. ASPIRIN [Concomitant]
     Indication: PROPHYLAXIS
     Dates: start: 20090828

REACTIONS (4)
  - ARTHROPOD BITE [None]
  - ASTHENIA [None]
  - FLUSHING [None]
  - MYALGIA [None]
